FAERS Safety Report 6557317-4 (Version None)
Quarter: 2010Q1

REPORT INFORMATION
  Report Type: 
  Country: None (occurrence: None)
  Receive Date: 20100127
  Receipt Date: 20100127
  Transmission Date: 20100710
  Serious: Yes (Life-Threatening, Hospitalization)
  Sender: FDA-Public Use
  Company Number: None

PATIENT
  Sex: Female
  Weight: 70.3075 kg

DRUGS (1)
  1. JUNEL 1.5/30 [Suspect]
     Indication: ORAL CONTRACEPTION
     Dosage: 1 TABLET ONCE DAILY PO
     Route: 048
     Dates: start: 20080101, end: 20100121

REACTIONS (4)
  - CHEST PAIN [None]
  - DYSPNOEA [None]
  - MALAISE [None]
  - MUSCULOSKELETAL PAIN [None]
